FAERS Safety Report 9258726 (Version 2)
Quarter: 2013Q2

REPORT INFORMATION
  Report Type: Spontaneous
  Country: US (occurrence: US)
  Receive Date: 20130426
  Receipt Date: 20130524
  Transmission Date: 20140414
  Serious: Yes (Other)
  Sender: FDA-Public Use
  Company Number: US-ABBOTT-13P-163-1079192-00

PATIENT
  Age: 73 Year
  Sex: Female

DRUGS (9)
  1. HUMIRA [Suspect]
     Indication: RHEUMATOID ARTHRITIS
     Dates: start: 201102, end: 201207
  2. METHOTREXATE [Suspect]
     Indication: RHEUMATOID ARTHRITIS
  3. LEVOTHROID [Concomitant]
     Indication: PRODUCT USED FOR UNKNOWN INDICATION
  4. VICODIN [Concomitant]
     Indication: PAIN
  5. SOMA [Concomitant]
     Indication: PAIN
  6. MEVACOR [Concomitant]
     Indication: PRODUCT USED FOR UNKNOWN INDICATION
  7. ATENOLOL [Concomitant]
     Indication: PRODUCT USED FOR UNKNOWN INDICATION
  8. XALATAN [Concomitant]
     Indication: PRODUCT USED FOR UNKNOWN INDICATION
     Dosage: DROPS
  9. AMBIEN [Concomitant]
     Indication: PRODUCT USED FOR UNKNOWN INDICATION
     Dosage: AT BEDTIME

REACTIONS (13)
  - Glaucoma [Not Recovered/Not Resolved]
  - Squamous cell carcinoma of skin [Recovered/Resolved]
  - Drug ineffective [Unknown]
  - Arthralgia [Not Recovered/Not Resolved]
  - Feeling abnormal [Not Recovered/Not Resolved]
  - Injection site urticaria [Recovered/Resolved]
  - Injection site erythema [Recovered/Resolved]
  - Injection site pain [Recovered/Resolved]
  - Injection site pruritus [Recovered/Resolved]
  - Injection site urticaria [Recovering/Resolving]
  - Injection site erythema [Recovering/Resolving]
  - Injection site pain [Recovering/Resolving]
  - Injection site pruritus [Recovering/Resolving]
